FAERS Safety Report 7412133-6 (Version None)
Quarter: 2011Q2

REPORT INFORMATION
  Report Type: 
  Country: None (occurrence: None)
  Receive Date: 20110413
  Receipt Date: 20110318
  Transmission Date: 20111010
  Serious: Yes (Hospitalization, Other)
  Sender: FDA-Public Use
  Company Number: US-BAYER-201031824NA

PATIENT
  Age: 20 Year
  Sex: Female
  Weight: 70 kg

DRUGS (5)
  1. ATRIAN [Concomitant]
     Indication: SOCIAL PHOBIA
  2. ATIVAN [Concomitant]
     Dosage: UNK UNK, PRN
  3. YAZ [Suspect]
     Indication: CONTRACEPTION
     Route: 048
     Dates: start: 20070101, end: 20080101
  4. SYNTHROID [Concomitant]
     Dosage: 0.025 MG, QD
     Route: 048
  5. SYNTHROID [Concomitant]
     Indication: HYPOTHYROIDISM
     Dates: start: 20060101, end: 20100101

REACTIONS (3)
  - INTRACRANIAL VENOUS SINUS THROMBOSIS [None]
  - DEEP VEIN THROMBOSIS [None]
  - CEREBROVASCULAR ACCIDENT [None]
